APPROVED DRUG PRODUCT: HYDRALAZINE HYDROCHLORIDE
Active Ingredient: HYDRALAZINE HYDROCHLORIDE
Strength: 100MG
Dosage Form/Route: TABLET;ORAL
Application: A088391 | Product #001
Applicant: STRIDES PHARMA INTERNATIONAL AG
Approved: Sep 27, 1983 | RLD: No | RS: No | Type: DISCN